FAERS Safety Report 14730278 (Version 1)
Quarter: 2018Q2

REPORT INFORMATION
  Report Type: Report from Study
  Country: CA (occurrence: CA)
  Receive Date: 20180406
  Receipt Date: 20180406
  Transmission Date: 20180711
  Serious: Yes (Other)
  Sender: FDA-Public Use
  Company Number: CA-AMGEN-CANSL2018044933

PATIENT
  Age: 63 Year
  Sex: Male

DRUGS (11)
  1. ENBREL [Suspect]
     Active Substance: ETANERCEPT
     Dosage: 50 MG, INCREASED INTERVAL UP TO 17 DAYS ON OCCASIONS
     Route: 058
  2. ASA [Concomitant]
     Active Substance: ASPIRIN
  3. TICAGRELOR. [Concomitant]
     Active Substance: TICAGRELOR
     Dosage: UNK
  4. DILTIAZEM. [Concomitant]
     Active Substance: DILTIAZEM
     Dosage: UNK
  5. PLAVIX [Concomitant]
     Active Substance: CLOPIDOGREL BISULFATE
     Dosage: UNK
  6. FENOFIBRATE. [Concomitant]
     Active Substance: FENOFIBRATE
     Dosage: UNK
  7. ROSUVASTATIN. [Concomitant]
     Active Substance: ROSUVASTATIN
     Dosage: UNK
  8. BISOPROLOL [Concomitant]
     Active Substance: BISOPROLOL
     Dosage: UNK
  9. HYDROCHLOROTHIAZIDE. [Concomitant]
     Active Substance: HYDROCHLOROTHIAZIDE
     Dosage: UNK
  10. ENBREL [Suspect]
     Active Substance: ETANERCEPT
     Indication: PSORIATIC ARTHROPATHY
     Dosage: 50 MG, Q2WK
     Route: 058
     Dates: start: 20080306
  11. ENALAPRIL [Concomitant]
     Active Substance: ENALAPRIL
     Dosage: UNK

REACTIONS (19)
  - Blastomycosis [Recovered/Resolved]
  - Haemoglobin increased [Unknown]
  - Blood uric acid increased [Unknown]
  - Coronary artery disease [Unknown]
  - Hypertension [Unknown]
  - Nail disorder [Unknown]
  - Dyslipidaemia [Unknown]
  - Myocardial infarction [Unknown]
  - Kyphosis [Unknown]
  - Off label use [Unknown]
  - Angina pectoris [Unknown]
  - Lymphadenopathy [Unknown]
  - Large intestine polyp [Recovered/Resolved]
  - Spinal osteoarthritis [Unknown]
  - Psoriasis [Unknown]
  - Surgery [Unknown]
  - Skin lesion [Unknown]
  - Nail pitting [Unknown]
  - Blood glucose increased [Unknown]

NARRATIVE: CASE EVENT DATE: 20131216
